FAERS Safety Report 9551775 (Version 2)
Quarter: 2013Q3

REPORT INFORMATION
  Report Type: Spontaneous
  Country: ES (occurrence: ES)
  Receive Date: 20130925
  Receipt Date: 20130925
  Transmission Date: 20140515
  Serious: Yes (Other)
  Sender: FDA-Public Use
  Company Number: ES-ASTRAZENECA-2013SE17185

PATIENT
  Age: 3 Year
  Sex: Male

DRUGS (3)
  1. AXIAGO [Suspect]
     Indication: GASTROOESOPHAGEAL REFLUX DISEASE
     Route: 048
     Dates: end: 2013
  2. AXIAGO [Suspect]
     Indication: GASTROOESOPHAGEAL REFLUX DISEASE
     Route: 048
     Dates: start: 2013
  3. MELATONIN [Concomitant]

REACTIONS (6)
  - Viral infection [Unknown]
  - Neutropenia [Unknown]
  - Lymphocytosis [Unknown]
  - Drug intolerance [Unknown]
  - Insomnia [Unknown]
  - Off label use [Unknown]
